FAERS Safety Report 4704653-X (Version None)
Quarter: 2005Q2

REPORT INFORMATION
  Report Type: 
  Country: None (occurrence: None)
  Receive Date: 20050629
  Receipt Date: 20050616
  Transmission Date: 20051028
  Serious: Yes (Hospitalization)
  Sender: FDA-Public Use
  Company Number: DSA_26639_2005

PATIENT
  Sex: Male

DRUGS (2)
  1. RENIVACE [Suspect]
     Dosage: 10 MG Q DAY PO
     Route: 048
  2. INSULIN [Concomitant]

REACTIONS (2)
  - CONDITION AGGRAVATED [None]
  - HYPOGLYCAEMIA [None]
